FAERS Safety Report 12579408 (Version 1)
Quarter: 2016Q3

REPORT INFORMATION
  Report Type: Spontaneous
  Country: US (occurrence: US)
  Receive Date: 20160721
  Receipt Date: 20160721
  Transmission Date: 20161109
  Serious: No
  Sender: FDA-Public Use
  Company Number: US-GLAXOSMITHKLINE-US2016101612

PATIENT
  Age: 74 Year
  Sex: Female

DRUGS (1)
  1. VOLTAREN [Suspect]
     Active Substance: DICLOFENAC SODIUM
     Indication: ANKLE FRACTURE
     Dosage: UNK, APPLIED IT ONCE A DAY FOR 4 OR 5 DAYS

REACTIONS (4)
  - Drug administered at inappropriate site [Unknown]
  - Off label use [Unknown]
  - Drug ineffective [Unknown]
  - Inappropriate schedule of drug administration [Unknown]
